FAERS Safety Report 5525449-5 (Version None)
Quarter: 2007Q4

REPORT INFORMATION
  Report Type: 
  Country: None (occurrence: None)
  Receive Date: 20071119
  Receipt Date: 20071108
  Transmission Date: 20080405
  Serious: Yes (Other)
  Sender: FDA-Public Use
  Company Number: GXKR2007GB09618

PATIENT
  Age: 56 Year
  Sex: Female
  Weight: 103 kg

DRUGS (12)
  1. METRONIDAZOLE [Suspect]
     Indication: GIARDIASIS
     Dosage: 400 MG, TID, ORAL
     Route: 048
     Dates: start: 20070928, end: 20071005
  2. ALLOPURINOL [Concomitant]
  3. BENDROFLUAZIDE (BENDROFLUMETHIAZIDE) [Concomitant]
  4. CO-COMADOL (CODEINE PHOSPHATE, PARACETAMOL) [Concomitant]
  5. DILTIAZEM [Concomitant]
  6. ESOMEPRAZOLE (ESOMEPRAZOLE) [Concomitant]
  7. FEXOFENADINE HCL [Concomitant]
  8. FLUTICASONE PROPIONATE [Concomitant]
  9. SALBUTAMOL (SALBUTAMOL) [Concomitant]
  10. SALMETEROL (SALMETEROL) [Concomitant]
  11. SIMVASTATIN [Concomitant]
  12. PROCHLORPERAZINE [Concomitant]

REACTIONS (1)
  - HEPATITIS [None]
